FAERS Safety Report 25426393 (Version 1)
Quarter: 2025Q2

REPORT INFORMATION
  Report Type: Spontaneous
  Country: CH (occurrence: CH)
  Receive Date: 20250612
  Receipt Date: 20250612
  Transmission Date: 20250716
  Serious: Yes (Hospitalization, Other)
  Sender: ABBVIE
  Company Number: CH-ABBVIE-6319299

PATIENT
  Age: 49 Year
  Sex: Male
  Weight: 55 kg

DRUGS (6)
  1. HUMIRA [Suspect]
     Active Substance: ADALIMUMAB
     Indication: Sarcoidosis
     Dosage: 80 MILLIGRAM
     Route: 058
     Dates: start: 202406, end: 20250224
  2. HUMIRA [Suspect]
     Active Substance: ADALIMUMAB
     Dosage: 80 MILLIGRAM
     Route: 058
     Dates: start: 20240301, end: 202406
  3. MIRABEGRON [Concomitant]
     Active Substance: MIRABEGRON
     Indication: Product used for unknown indication
  4. Prostagutt F [Concomitant]
     Indication: Product used for unknown indication
  5. EUTHYROX [Concomitant]
     Active Substance: LEVOTHYROXINE SODIUM
     Indication: Product used for unknown indication
  6. Maltofer [Concomitant]
     Indication: Product used for unknown indication

REACTIONS (6)
  - Colitis [Recovering/Resolving]
  - Chronic hepatitis [Recovering/Resolving]
  - Diarrhoea [Recovering/Resolving]
  - Faecal calprotectin increased [Recovering/Resolving]
  - C-reactive protein increased [Recovered/Resolved]
  - Off label use [Unknown]

NARRATIVE: CASE EVENT DATE: 20240601
